FAERS Safety Report 5406067-6 (Version None)
Quarter: 2007Q3

REPORT INFORMATION
  Report Type: 
  Country: None (occurrence: None)
  Receive Date: 20070806
  Receipt Date: 20070730
  Transmission Date: 20080115
  Serious: Yes (Other)
  Sender: FDA-Public Use
  Company Number: B0482025A

PATIENT
  Age: 50 Year
  Sex: Male
  Weight: 60 kg

DRUGS (4)
  1. REQUIP [Suspect]
     Indication: PARKINSON'S DISEASE
     Dosage: 3MG PER DAY
     Route: 048
     Dates: start: 20060301
  2. MADOPAR [Concomitant]
     Indication: PARKINSON'S DISEASE
     Dosage: 375MG PER DAY
     Route: 048
     Dates: start: 20070301
  3. PROCYCLIDINE HYDROCHLORIDE 2MG TAB [Concomitant]
     Indication: PARKINSON'S DISEASE
     Dosage: 5MG PER DAY
     Route: 048
     Dates: start: 20070301
  4. LEVODOPA [Concomitant]
     Indication: PARKINSON'S DISEASE
     Dosage: 75MG PER DAY
     Route: 048

REACTIONS (2)
  - ERYTHEMA [None]
  - PALMAR ERYTHEMA [None]
